FAERS Safety Report 25299162 (Version 2)
Quarter: 2025Q2

REPORT INFORMATION
  Report Type: Report from Study
  Country: CN (occurrence: CN)
  Receive Date: 20250512
  Receipt Date: 20250516
  Transmission Date: 20250716
  Serious: No
  Sender: ROCHE
  Company Number: CN-ROCHE-10000040484

PATIENT
  Age: 62 Year
  Sex: Female
  Weight: 54.7 kg

DRUGS (64)
  1. POLATUZUMAB VEDOTIN [Suspect]
     Active Substance: POLATUZUMAB VEDOTIN
     Indication: Diffuse large B-cell lymphoma
     Route: 042
     Dates: end: 20240521
  2. RITUXIMAB [Suspect]
     Active Substance: RITUXIMAB
     Indication: Diffuse large B-cell lymphoma
     Route: 042
     Dates: start: 20240520, end: 20240520
  3. RITUXIMAB [Suspect]
     Active Substance: RITUXIMAB
     Route: 042
     Dates: start: 20240614, end: 20240614
  4. RITUXIMAB [Suspect]
     Active Substance: RITUXIMAB
     Route: 042
     Dates: start: 20240724, end: 20240724
  5. RITUXIMAB [Suspect]
     Active Substance: RITUXIMAB
     Route: 042
     Dates: start: 20240816, end: 20240816
  6. RITUXIMAB [Suspect]
     Active Substance: RITUXIMAB
     Route: 042
     Dates: start: 20240920, end: 20240920
  7. RITUXIMAB [Suspect]
     Active Substance: RITUXIMAB
     Route: 042
     Dates: start: 20241106, end: 20241106
  8. METHOTREXATE [Suspect]
     Active Substance: METHOTREXATE
     Indication: Diffuse large B-cell lymphoma
     Route: 042
     Dates: start: 20240519, end: 20240519
  9. DOXORUBICIN HYDROCHLORIDE [Suspect]
     Active Substance: DOXORUBICIN HYDROCHLORIDE
     Indication: Diffuse large B-cell lymphoma
     Route: 042
     Dates: end: 20240521
  10. DOXORUBICIN HYDROCHLORIDE [Suspect]
     Active Substance: DOXORUBICIN HYDROCHLORIDE
     Route: 042
     Dates: end: 20240922
  11. DOXORUBICIN HYDROCHLORIDE [Suspect]
     Active Substance: DOXORUBICIN HYDROCHLORIDE
     Route: 042
     Dates: start: 20241107, end: 20241107
  12. CYCLOPHOSPHAMIDE [Suspect]
     Active Substance: CYCLOPHOSPHAMIDE
     Indication: Diffuse large B-cell lymphoma
     Route: 048
     Dates: end: 20240521
  13. CYCLOPHOSPHAMIDE [Suspect]
     Active Substance: CYCLOPHOSPHAMIDE
     Route: 042
     Dates: end: 20240922
  14. CYCLOPHOSPHAMIDE [Suspect]
     Active Substance: CYCLOPHOSPHAMIDE
     Route: 042
     Dates: start: 20241107, end: 20241107
  15. METHYLPREDNISOLONE [Suspect]
     Active Substance: METHYLPREDNISOLONE
     Indication: Diffuse large B-cell lymphoma
     Route: 048
     Dates: end: 20240524
  16. ORELABRUTINIB [Suspect]
     Active Substance: ORELABRUTINIB
     Indication: Diffuse large B-cell lymphoma
     Dosage: START DATE: 16-AUG-2024
     Route: 048
     Dates: end: 20240920
  17. ORELABRUTINIB [Suspect]
     Active Substance: ORELABRUTINIB
     Dosage: START DATE: 21-SEP-2024
     Route: 048
     Dates: start: 20241106, end: 20241127
  18. ORELABRUTINIB [Suspect]
     Active Substance: ORELABRUTINIB
     Dosage: START DATE: 21-SEP-2024
     Route: 048
  19. VINDESINE [Suspect]
     Active Substance: VINDESINE
     Indication: Diffuse large B-cell lymphoma
     Route: 042
     Dates: end: 20240922
  20. PREDNISONE [Suspect]
     Active Substance: PREDNISONE
     Indication: Diffuse large B-cell lymphoma
     Route: 042
     Dates: end: 20240922
  21. Netupitant and palonosetron capsules [Concomitant]
     Dosage: 1 CAPSULE
     Route: 048
     Dates: start: 20240722, end: 20240727
  22. Netupitant and palonosetron capsules [Concomitant]
     Dosage: 1 CAPSULE
     Route: 048
     Dates: start: 20240816, end: 20240816
  23. LINEZOLID [Concomitant]
     Active Substance: LINEZOLID
     Route: 048
     Dates: start: 20240517, end: 20240617
  24. Levofloxacin Sodium Chloride [Concomitant]
     Route: 042
     Dates: start: 20240517, end: 20240527
  25. AMBROXOL HYDROCHLORIDE [Concomitant]
     Active Substance: AMBROXOL HYDROCHLORIDE
     Route: 042
     Dates: start: 20240517, end: 20240527
  26. ACETYLCYSTEINE [Concomitant]
     Active Substance: ACETYLCYSTEINE
     Route: 055
     Dates: start: 20240517, end: 20240519
  27. ACETYLCYSTEINE [Concomitant]
     Active Substance: ACETYLCYSTEINE
     Route: 048
     Dates: start: 20240816
  28. OMEPRAZOLE [Concomitant]
     Active Substance: OMEPRAZOLE
     Route: 048
     Dates: start: 20240518, end: 20240521
  29. OMEPRAZOLE [Concomitant]
     Active Substance: OMEPRAZOLE
     Route: 048
     Dates: start: 20240922, end: 20240925
  30. OMEPRAZOLE [Concomitant]
     Active Substance: OMEPRAZOLE
     Route: 048
     Dates: start: 20240816, end: 20240820
  31. PROMETHAZINE [Concomitant]
     Active Substance: PROMETHAZINE HYDROCHLORIDE
     Route: 030
     Dates: start: 20240518, end: 20240519
  32. PROMETHAZINE [Concomitant]
     Active Substance: PROMETHAZINE HYDROCHLORIDE
     Route: 030
     Dates: start: 20240816, end: 20240816
  33. METHYLPREDNISOLONE SODIUM SUCCINATE [Concomitant]
     Active Substance: METHYLPREDNISOLONE SODIUM SUCCINATE
     Route: 042
     Dates: start: 20240518, end: 20240521
  34. METHYLPREDNISOLONE SODIUM SUCCINATE [Concomitant]
     Active Substance: METHYLPREDNISOLONE SODIUM SUCCINATE
     Route: 042
     Dates: start: 20240816, end: 20240816
  35. VITAMIN B6 [Concomitant]
     Active Substance: PYRIDOXINE HYDROCHLORIDE
     Route: 042
     Dates: start: 20240518, end: 20240520
  36. ACETAMINOPHEN [Concomitant]
     Active Substance: ACETAMINOPHEN
     Route: 048
     Dates: start: 20240518, end: 20240520
  37. SODIUM BICARBONATE [Concomitant]
     Active Substance: SODIUM BICARBONATE
     Route: 042
     Dates: start: 20240518, end: 20240527
  38. TORSEMIDE [Concomitant]
     Active Substance: TORSEMIDE
     Route: 042
     Dates: start: 20240518, end: 20240527
  39. LEUCOVORIN CALCIUM [Concomitant]
     Active Substance: LEUCOVORIN CALCIUM
     Route: 042
     Dates: start: 20240520, end: 20240520
  40. GLUTATHIONE [Concomitant]
     Active Substance: GLUTATHIONE
     Route: 042
     Dates: start: 20240521, end: 20240527
  41. POTASSIUM CHLORIDE [Concomitant]
     Active Substance: POTASSIUM CHLORIDE
     Route: 042
     Dates: start: 20240521, end: 20240527
  42. FEBUXOSTAT [Concomitant]
     Active Substance: FEBUXOSTAT
     Route: 048
     Dates: start: 20240521, end: 20240527
  43. ONDANSETRON HYDROCHLORIDE [Concomitant]
     Active Substance: ONDANSETRON HYDROCHLORIDE
     Route: 042
     Dates: start: 20240522, end: 20240522
  44. CALCIUM GLUCONATE [Concomitant]
     Active Substance: CALCIUM GLUCONATE
     Route: 042
     Dates: start: 20240522, end: 20240527
  45. METOCLOPRAMIDE DIHYDROCHLORIDE [Concomitant]
     Active Substance: METOCLOPRAMIDE DIHYDROCHLORIDE
     Route: 030
     Dates: start: 20240522, end: 20240527
  46. diammonium glycyrrhizinate enteric-coated capsule [Concomitant]
     Route: 048
     Dates: start: 20240525, end: 20240527
  47. diammonium glycyrrhizinate enteric-coated capsule [Concomitant]
     Route: 048
     Dates: start: 20240816
  48. Sodium Lactate Ringer?s Injection [Concomitant]
     Route: 042
     Dates: start: 20240525, end: 20240527
  49. Recombinant Human Granulocyte Colony Stimulating Factor Injection [Concomitant]
     Route: 058
     Dates: start: 20240525, end: 20240527
  50. Recombinant Human Granulocyte Colony Stimulating Factor Injection [Concomitant]
     Dates: start: 202410, end: 202410
  51. LEUCOGEN [Concomitant]
     Active Substance: LEUCOGEN
     Route: 048
     Dates: start: 20240524
  52. Cefaclor Sustained Release Tablets [Concomitant]
     Route: 048
     Dates: start: 20240524
  53. MOXIFLOXACIN [Concomitant]
     Active Substance: MOXIFLOXACIN
     Route: 048
     Dates: start: 20240706, end: 20240727
  54. Netupitant and palonosetron capsules [Concomitant]
     Route: 048
     Dates: start: 20240722, end: 20240727
  55. Cordyceps militaris tablets [Concomitant]
     Route: 048
     Dates: start: 20240815
  56. HEPARIN SODIUM [Concomitant]
     Active Substance: HEPARIN SODIUM
     Route: 042
     Dates: start: 20240819, end: 20240819
  57. Recombinant human thrombopoietin injection [Concomitant]
     Route: 050
     Dates: start: 202410, end: 202410
  58. IMIPENEM [Concomitant]
     Active Substance: IMIPENEM
     Route: 050
     Dates: start: 202410, end: 202410
  59. FLUCONAZOLE [Concomitant]
     Active Substance: FLUCONAZOLE
     Route: 050
     Dates: start: 202410, end: 202410
  60. MEROPENEM [Concomitant]
     Active Substance: MEROPENEM
     Route: 042
     Dates: start: 202410, end: 202410
  61. SULFAMETHOXAZOLE [Concomitant]
     Active Substance: SULFAMETHOXAZOLE
     Route: 048
     Dates: start: 202410, end: 202410
  62. RANITIDINE [Concomitant]
     Active Substance: RANITIDINE
     Route: 048
     Dates: start: 202410, end: 202410
  63. FUROSEMIDE [Concomitant]
     Active Substance: FUROSEMIDE
     Dates: start: 202410, end: 202410
  64. SPIRONOLACTONE [Concomitant]
     Active Substance: SPIRONOLACTONE
     Dates: start: 202410, end: 202410

REACTIONS (7)
  - Hypocalcaemia [Recovered/Resolved]
  - White blood cell count decreased [Recovered/Resolved]
  - Lymphocyte count decreased [Not Recovered/Not Resolved]
  - Hypokalaemia [Recovered/Resolved]
  - Blood creatinine increased [Not Recovered/Not Resolved]
  - Hypoalbuminaemia [Recovered/Resolved]
  - Neutrophil count decreased [Not Recovered/Not Resolved]

NARRATIVE: CASE EVENT DATE: 20240520
